FAERS Safety Report 20503022 (Version 1)
Quarter: 2022Q1

REPORT INFORMATION
  Report Type: Spontaneous
  Country: US (occurrence: US)
  Receive Date: 20220222
  Receipt Date: 20220222
  Transmission Date: 20220423
  Serious: Yes (Other)
  Sender: FDA-Public Use
  Company Number: US-ALLERGAN-2128155US

PATIENT
  Sex: Male

DRUGS (1)
  1. OZURDEX [Suspect]
     Active Substance: DEXAMETHASONE
     Indication: Diabetic retinal oedema
     Dosage: 0.7 MG, SINGLE
     Route: 031
     Dates: start: 20210810, end: 20210810

REACTIONS (3)
  - Vitreous haemorrhage [Recovered/Resolved]
  - Retinal detachment [Unknown]
  - Administration site haemorrhage [Recovered/Resolved]

NARRATIVE: CASE EVENT DATE: 20210810
